FAERS Safety Report 23874090 (Version 1)
Quarter: 2024Q2

REPORT INFORMATION
  Report Type: Spontaneous
  Country: US (occurrence: None)
  Receive Date: 20240517
  Receipt Date: 20240517
  Transmission Date: 20240716
  Serious: Yes (Other)
  Sender: FDA-Public Use
  Company Number: None

PATIENT
  Age: 68 Year
  Sex: Female
  Weight: 50.4 kg

DRUGS (1)
  1. LEQEMBI [Suspect]
     Active Substance: LECANEMAB-IRMB
     Indication: Dementia Alzheimer^s type
     Dosage: 10 MG/KG Q2WEEKS INTRAVENOUS?
     Route: 042
     Dates: start: 20240327, end: 20240409

REACTIONS (12)
  - Headache [None]
  - Unresponsive to stimuli [None]
  - Hypotension [None]
  - Hyperhidrosis [None]
  - Pallor [None]
  - Chills [None]
  - Tremor [None]
  - Back pain [None]
  - Photophobia [None]
  - Loss of consciousness [None]
  - Vomiting [None]
  - Therapy cessation [None]

NARRATIVE: CASE EVENT DATE: 20240327
